FAERS Safety Report 7302948-7 (Version None)
Quarter: 2011Q1

REPORT INFORMATION
  Report Type: 
  Country: None (occurrence: None)
  Receive Date: 20110218
  Receipt Date: 20110131
  Transmission Date: 20110831
  Serious: Yes (Other)
  Sender: FDA-Public Use
  Company Number: ZA-ASTRAZENECA-2011SE05620

PATIENT
  Age: 65 Year
  Sex: Female

DRUGS (11)
  1. PRAVASTATIN [Concomitant]
     Dates: start: 20050101, end: 20091027
  2. METHOTREXATE [Concomitant]
  3. PREDNISONE [Suspect]
  4. LANSOPRAZOLE [Concomitant]
  5. CRESTOR [Suspect]
     Indication: HYPERCHOLESTEROLAEMIA
     Route: 048
     Dates: start: 20091027, end: 20110116
  6. LIPITOR [Concomitant]
     Dates: start: 20050101, end: 20091027
  7. STEROIDS [Concomitant]
  8. CHLOROQUINE [Suspect]
  9. ESTROFEM [Concomitant]
  10. DICLOFENAC [Concomitant]
  11. NSAIDS [Concomitant]

REACTIONS (2)
  - MUSCULAR WEAKNESS [None]
  - MUSCLE ATROPHY [None]
